FAERS Safety Report 20720661 (Version 1)
Quarter: 2022Q2

REPORT INFORMATION
  Report Type: Report from Study
  Country: CO (occurrence: CO)
  Receive Date: 20220418
  Receipt Date: 20220418
  Transmission Date: 20220720
  Serious: Yes (Other)
  Sender: FDA-Public Use
  Company Number: CO-BoehringerIngelheim-2022-BI-165485

PATIENT
  Age: 58 Year
  Sex: Female

DRUGS (2)
  1. EMPAGLIFLOZIN\METFORMIN HYDROCHLORIDE [Suspect]
     Active Substance: EMPAGLIFLOZIN\METFORMIN HYDROCHLORIDE
     Indication: Product used for unknown indication
     Dates: start: 20220409
  2. DULAGLUTIDE [Suspect]
     Active Substance: DULAGLUTIDE
     Indication: Type 2 diabetes mellitus
     Route: 058
     Dates: start: 20220408

REACTIONS (5)
  - Loss of consciousness [Recovered/Resolved]
  - Dizziness [Unknown]
  - Muscle spasms [Unknown]
  - Headache [Unknown]
  - Discomfort [Unknown]

NARRATIVE: CASE EVENT DATE: 20220408
